FAERS Safety Report 9032176 (Version 2)
Quarter: 2013Q1

REPORT INFORMATION
  Report Type: Spontaneous
  Country: PA (occurrence: PA)
  Receive Date: 20130122
  Receipt Date: 20130131
  Transmission Date: 20140127
  Serious: Yes (Other)
  Sender: FDA-Public Use
  Company Number: PA-PFIZER INC-2013026395

PATIENT
  Age: 37 Year
  Sex: Female

DRUGS (1)
  1. ALTRULINE [Suspect]
     Dosage: 50 MG, 1X/DAY
     Route: 048
     Dates: start: 201208

REACTIONS (3)
  - Erythema [Unknown]
  - Serum serotonin increased [Unknown]
  - Syncope [Unknown]
